FAERS Safety Report 5531368-0 (Version None)
Quarter: 2007Q4

REPORT INFORMATION
  Report Type: 
  Country: None (occurrence: None)
  Receive Date: 20071127
  Receipt Date: 20071114
  Transmission Date: 20080405
  Serious: Yes (Death)
  Sender: FDA-Public Use
  Company Number: RENA-12340

PATIENT
  Age: 54 Year
  Sex: Female

DRUGS (2)
  1. RENAGEL [Suspect]
     Indication: HYPERPHOSPHATAEMIA
     Dates: start: 20070411, end: 20070924
  2. RENAGEL [Suspect]
     Indication: RENAL FAILURE CHRONIC
     Dates: start: 20070411, end: 20070924

REACTIONS (3)
  - CARDIOGENIC SHOCK [None]
  - CORONARY ARTERY DISEASE [None]
  - MYOCARDIAL ISCHAEMIA [None]
